FAERS Safety Report 10271915 (Version 2)
Quarter: 2014Q3

REPORT INFORMATION
  Report Type: Spontaneous
  Country: US (occurrence: US)
  Receive Date: 20140702
  Receipt Date: 20140722
  Transmission Date: 20150326
  Serious: Yes (Other)
  Sender: FDA-Public Use
  Company Number: PHEH2014US012591

PATIENT
  Age: 57 Year
  Sex: Female

DRUGS (1)
  1. RECLAST [Suspect]
     Active Substance: ZOLEDRONIC ACID
     Indication: OSTEOPOROSIS
     Dosage: UNK UKN, UNK (FOR THE PAST 2 YEARS)
     Route: 042

REACTIONS (6)
  - Clavicle fracture [Unknown]
  - Pubis fracture [Unknown]
  - Fall [Unknown]
  - Spinal fracture [Unknown]
  - Thoracic vertebral fracture [Unknown]
  - Drug ineffective [Unknown]

NARRATIVE: CASE EVENT DATE: 201301
